FAERS Safety Report 18756780 (Version 1)
Quarter: 2021Q1

REPORT INFORMATION
  Report Type: Spontaneous
  Country: IN (occurrence: IN)
  Receive Date: 20210119
  Receipt Date: 20210119
  Transmission Date: 20210419
  Serious: Yes (Other)
  Sender: FDA-Public Use
  Company Number: IN-JNJFOC-20210127439

PATIENT
  Age: 32 Year
  Sex: Female

DRUGS (4)
  1. TRAMADOL HYDROCHLORIDE. [Suspect]
     Active Substance: TRAMADOL HYDROCHLORIDE
     Dosage: 400 MILLIGRAM, 1/DAY
     Route: 042
  2. TRAMADOL HYDROCHLORIDE. [Suspect]
     Active Substance: TRAMADOL HYDROCHLORIDE
     Dosage: 2100 MILLIGRAM, 1/DAY
     Route: 042
  3. TRAMADOL HYDROCHLORIDE. [Suspect]
     Active Substance: TRAMADOL HYDROCHLORIDE
     Dosage: 200 MILLIGRAM, 1/DAY
     Route: 042
  4. TRAMADOL HYDROCHLORIDE. [Suspect]
     Active Substance: TRAMADOL HYDROCHLORIDE
     Indication: ABDOMINAL PAIN UPPER
     Dosage: 100 MILLIGRAM
     Route: 042

REACTIONS (21)
  - Drug abuse [Unknown]
  - Angiosclerosis [Unknown]
  - Mental disorder [Unknown]
  - Injection site induration [Unknown]
  - Withdrawal syndrome [Unknown]
  - Depressed mood [Unknown]
  - Drug dependence [Unknown]
  - Unresponsive to stimuli [Unknown]
  - Tonic clonic movements [Unknown]
  - Helplessness [Unknown]
  - Drug tolerance increased [Unknown]
  - Injection site ulcer [Unknown]
  - Intentional product misuse [Unknown]
  - Intentional overdose [Unknown]
  - Cellulitis [Unknown]
  - Bruxism [Unknown]
  - Confusional state [Unknown]
  - Malaise [Unknown]
  - Skin ulcer [Unknown]
  - General physical health deterioration [Unknown]
  - Prescription drug used without a prescription [Unknown]
